FAERS Safety Report 10194217 (Version 1)
Quarter: 2014Q2

REPORT INFORMATION
  Report Type: Spontaneous
  Country: US (occurrence: US)
  Receive Date: 20140525
  Receipt Date: 20140525
  Transmission Date: 20141212
  Serious: No
  Sender: FDA-Public Use
  Company Number: US-ASTRAZENECA-2014SE33246

PATIENT
  Sex: Male

DRUGS (2)
  1. SEROQUEL [Suspect]
     Route: 048
  2. SEROQUEL [Suspect]
     Route: 048

REACTIONS (8)
  - Emotional disorder [Unknown]
  - Confusional state [Unknown]
  - Thinking abnormal [Unknown]
  - Agitation [Unknown]
  - Activities of daily living impaired [Unknown]
  - Eye movement disorder [Unknown]
  - Abnormal dreams [Unknown]
  - Intentional product misuse [Unknown]
